FAERS Safety Report 21896082 (Version 1)
Quarter: 2023Q1

REPORT INFORMATION
  Report Type: Report from Study
  Country: US (occurrence: US)
  Receive Date: 20230123
  Receipt Date: 20230123
  Transmission Date: 20230418
  Serious: Yes (Other)
  Sender: FDA-Public Use
  Company Number: US-UCBSA-2023003080

PATIENT
  Sex: Male

DRUGS (1)
  1. BRIVARACETAM [Suspect]
     Active Substance: BRIVARACETAM
     Indication: Seizure
     Dosage: 75 MILLIGRAM,1 TABLET 2X/DAY (BID)

REACTIONS (7)
  - Depressed level of consciousness [Unknown]
  - Syncope [Unknown]
  - Anxiety [Unknown]
  - Panic attack [Unknown]
  - Chest discomfort [Unknown]
  - Irregular breathing [Unknown]
  - Wrong technique in product usage process [Unknown]
